FAERS Safety Report 7492326-2 (Version None)
Quarter: 2011Q2

REPORT INFORMATION
  Report Type: 
  Country: None (occurrence: None)
  Receive Date: 20110519
  Receipt Date: 20110516
  Transmission Date: 20111010
  Serious: Yes (Other)
  Sender: FDA-Public Use
  Company Number: US-BAYER-2011-042745

PATIENT
  Sex: Female

DRUGS (4)
  1. YASMIN [Suspect]
     Indication: PRODUCT USED FOR UNKNOWN INDICATION
     Dosage: UNK
     Dates: start: 20050301, end: 20070301
  2. YAZ [Suspect]
     Dosage: UNK
     Dates: start: 20090401, end: 20100701
  3. YASMIN [Suspect]
     Dosage: UNK
     Dates: start: 20070501, end: 20090401
  4. YAZ [Suspect]
     Indication: PRODUCT USED FOR UNKNOWN INDICATION
     Dosage: UNK
     Dates: start: 20070301, end: 20070401

REACTIONS (5)
  - INJURY [None]
  - ANXIETY [None]
  - GALLBLADDER INJURY [None]
  - PAIN [None]
  - EMOTIONAL DISTRESS [None]
